FAERS Safety Report 7293741-2 (Version None)
Quarter: 2011Q1

REPORT INFORMATION
  Report Type: 
  Country: None (occurrence: None)
  Receive Date: 20110215
  Receipt Date: 20110202
  Transmission Date: 20110831
  Serious: Yes (Hospitalization, Other)
  Sender: FDA-Public Use
  Company Number: US-ELI_LILLY_AND_COMPANY-US201102000910

PATIENT
  Sex: Female
  Weight: 87.075 kg

DRUGS (13)
  1. ZYPREXA ZYDIS [Suspect]
     Dosage: 2.5MG X 3 AT HS FOR 1 DAY
     Dates: start: 20040409, end: 20040409
  2. ZYPREXA ZYDIS [Suspect]
     Dosage: 15 MG, EACH EVENING
     Dates: start: 20031125, end: 20040409
  3. PRILOSEC [Concomitant]
     Dosage: 20 MG, DAILY (1/D)
  4. ZYPREXA ZYDIS [Suspect]
     Dosage: 5 MG, EACH EVENING
     Dates: start: 20040410, end: 20040410
  5. CARBAMAZEPINE [Concomitant]
     Dosage: 200 MG, EACH MORNING
  6. ZYPREXA ZYDIS [Suspect]
     Indication: STRESS
     Dosage: 15 MG, EACH EVENING
     Dates: start: 20031112, end: 20031119
  7. ZYPREXA ZYDIS [Suspect]
     Dosage: 2.5 MG, DAILY (1/D)
     Dates: start: 20040411, end: 20040411
  8. XANAX [Concomitant]
  9. CARBAMAZEPINE [Concomitant]
     Dosage: 400 MG, EACH EVENING
  10. COGENTIN [Concomitant]
     Dosage: 0.5 MG, 2/D
  11. ZYPREXA ZYDIS [Suspect]
     Dosage: 20 MG, EACH EVENING
     Dates: start: 20031119, end: 20031125
  12. COGENTIN [Concomitant]
     Dosage: 1 MG, EACH MORNING
  13. TOPAMAX [Concomitant]

REACTIONS (12)
  - WEIGHT INCREASED [None]
  - BLOOD CHOLESTEROL INCREASED [None]
  - SURGERY [None]
  - DIABETES MELLITUS [None]
  - NEOPLASM MALIGNANT [None]
  - NIGHTMARE [None]
  - OFF LABEL USE [None]
  - CONVULSION [None]
  - BLOOD GLUCOSE INCREASED [None]
  - OBESITY [None]
  - STRESS [None]
  - PNEUMONIA [None]
